FAERS Safety Report 17357502 (Version 1)
Quarter: 2020Q1

REPORT INFORMATION
  Report Type: Spontaneous
  Country: BR (occurrence: BR)
  Receive Date: 20200131
  Receipt Date: 20200131
  Transmission Date: 20200409
  Serious: Yes (Hospitalization)
  Sender: FDA-Public Use
  Company Number: BR-009507513-2001BRA008622

PATIENT
  Sex: Male

DRUGS (3)
  1. INVANZ [Suspect]
     Active Substance: ERTAPENEM SODIUM
     Indication: INFECTION
     Dosage: FOR 7 DAYS
     Dates: start: 2019
  2. INVANZ [Suspect]
     Active Substance: ERTAPENEM SODIUM
     Dosage: FOR 7 DAYS
     Dates: start: 2019
  3. INVANZ [Suspect]
     Active Substance: ERTAPENEM SODIUM
     Dosage: FOR 7 DAYS
     Dates: start: 2019

REACTIONS (1)
  - Treatment failure [Unknown]

NARRATIVE: CASE EVENT DATE: 2019
